FAERS Safety Report 20305127 (Version 7)
Quarter: 2023Q2

REPORT INFORMATION
  Report Type: Spontaneous
  Country: US (occurrence: US)
  Receive Date: 20220106
  Receipt Date: 20230526
  Transmission Date: 20230722
  Serious: Yes (Other)
  Sender: FDA-Public Use
  Company Number: US-UCBSA-2021054208

PATIENT
  Age: 81 Year
  Sex: Female
  Weight: 65.76 kg

DRUGS (1)
  1. CIMZIA [Suspect]
     Active Substance: CERTOLIZUMAB PEGOL
     Indication: Rheumatoid arthritis
     Dosage: 200 MILLIGRAM, EV 2 WEEKS(QOW)
     Route: 058
     Dates: start: 201210

REACTIONS (2)
  - Clostridium difficile infection [Unknown]
  - Illness [Unknown]

NARRATIVE: CASE EVENT DATE: 20220119
